FAERS Safety Report 8044826-4 (Version None)
Quarter: 2012Q1

REPORT INFORMATION
  Report Type: 
  Country: None (occurrence: None)
  Receive Date: 20120113
  Receipt Date: 20120104
  Transmission Date: 20120608
  Serious: Yes (Death)
  Sender: FDA-Public Use
  Company Number: HU-JNJFOC-20110800880

PATIENT
  Sex: Female
  Weight: 62 kg

DRUGS (5)
  1. FOLIC ACID [Concomitant]
     Indication: RHEUMATOID ARTHRITIS
     Route: 065
     Dates: start: 20010201, end: 20110518
  2. REMICADE [Suspect]
     Route: 042
  3. REMICADE [Suspect]
     Route: 042
     Dates: start: 20050101
  4. METHOTREXATE [Concomitant]
     Indication: RHEUMATOID ARTHRITIS
     Dates: start: 20010201, end: 20110518
  5. REMICADE [Suspect]
     Indication: RHEUMATOID ARTHRITIS
     Dosage: INCREASED DOSE
     Route: 042
     Dates: start: 20100714, end: 20110518

REACTIONS (4)
  - ACUTE RESPIRATORY DISTRESS SYNDROME [None]
  - PNEUMONIA [None]
  - THERAPEUTIC RESPONSE DECREASED [None]
  - Q FEVER [None]
